FAERS Safety Report 10866371 (Version 3)
Quarter: 2015Q2

REPORT INFORMATION
  Report Type: Spontaneous
  Country: US (occurrence: None)
  Receive Date: 20150220
  Receipt Date: 20150403
  Transmission Date: 20150821
  Serious: Yes (Hospitalization, Other)
  Sender: FDA-Public Use
  Company Number: US-2015VAL000156

PATIENT
  Age: 45 Year
  Sex: Female

DRUGS (11)
  1. METOPROLOL TARTRATE (METOPROLOL TARTRATE) UNKNOWN [Suspect]
     Active Substance: METOPROLOL TARTRATE
     Indication: PRODUCT USED FOR UNKNOWN INDICATION
     Dosage: ROUTE OF G-TUBE
  2. BACLOFEN (BACLOFEN) [Suspect]
     Active Substance: BACLOFEN
     Indication: PRODUCT USED FOR UNKNOWN INDICATION
     Dosage: ROUTE OF G-TUBE
  3. KEPPRA [Suspect]
     Active Substance: LEVETIRACETAM
     Indication: PRODUCT USED FOR UNKNOWN INDICATION
     Dosage: ROUTE OF G-TUBE
  4. DOCUSATE [Suspect]
     Active Substance: DOCUSATE
     Indication: PRODUCT USED FOR UNKNOWN INDICATION
     Route: 054
  5. LIORESAL [Suspect]
     Active Substance: BACLOFEN
     Indication: MUSCLE SPASTICITY
     Route: 037
     Dates: start: 20100518
  6. TRETINOIN. [Suspect]
     Active Substance: TRETINOIN
     Indication: MUSCLE SPASTICITY
     Dates: start: 20150204
  7. VERAPAMIL [Suspect]
     Active Substance: VERAPAMIL HYDROCHLORIDE
     Indication: PRODUCT USED FOR UNKNOWN INDICATION
     Dosage: ROUTE OF G-TUBE
  8. CLONAZEPAM (CLONAZEPAM) [Suspect]
     Active Substance: CLONAZEPAM
     Indication: PRODUCT USED FOR UNKNOWN INDICATION
     Dosage: ROUTE OF G-TUBE
  9. AMIODARONE (AMIODARONE) [Suspect]
     Active Substance: AMIODARONE
     Indication: PRODUCT USED FOR UNKNOWN INDICATION
     Dosage: ROUTE OF G-TUBE
  10. TRAZODONE [Suspect]
     Active Substance: TRAZODONE HYDROCHLORIDE
     Indication: PRODUCT USED FOR UNKNOWN INDICATION
     Dosage: ROUTE OF G-TUBE
  11. TYLENOL [Suspect]
     Active Substance: ACETAMINOPHEN
     Indication: PRODUCT USED FOR UNKNOWN INDICATION
     Dosage: ROUTE OF G-TUBE

REACTIONS (9)
  - Nephrolithiasis [None]
  - Flushing [None]
  - Agitation [None]
  - Hypertonia [None]
  - Muscle spasticity [None]
  - Urinary tract infection [None]
  - Device failure [None]
  - Pyrexia [None]
  - Hyperhidrosis [None]

NARRATIVE: CASE EVENT DATE: 20150128
